FAERS Safety Report 7840847-2 (Version None)
Quarter: 2011Q4

REPORT INFORMATION
  Report Type: 
  Country: None (occurrence: None)
  Receive Date: 20111021
  Receipt Date: 20111021
  Transmission Date: 20120403
  Serious: Yes (Other)
  Sender: FDA-Public Use
  Company Number: None

PATIENT
  Sex: Male
  Weight: 81.6475 kg

DRUGS (2)
  1. AMBIEN [Suspect]
     Indication: INSOMNIA
     Dates: start: 20030301, end: 20110920
  2. ZOLPIDEM [Suspect]
     Indication: DEPRESSION

REACTIONS (8)
  - BURNING SENSATION [None]
  - CONDITION AGGRAVATED [None]
  - PARAESTHESIA [None]
  - FEELING HOT [None]
  - ABNORMAL SENSATION IN EYE [None]
  - NECK PAIN [None]
  - GLAUCOMA [None]
  - TEMPERATURE REGULATION DISORDER [None]
